FAERS Safety Report 21278809 (Version 1)
Quarter: 2022Q3

REPORT INFORMATION
  Report Type: Spontaneous
  Country: FR (occurrence: FR)
  Receive Date: 20220901
  Receipt Date: 20220901
  Transmission Date: 20221027
  Serious: Yes (Other)
  Sender: FDA-Public Use
  Company Number: FR-BAYER-2022P012585

PATIENT
  Age: 74 Year
  Sex: Female

DRUGS (2)
  1. XARELTO [Suspect]
     Active Substance: RIVAROXABAN
     Indication: Arrhythmia
     Dosage: 20 MG, QD
     Route: 048
     Dates: start: 2016
  2. FLECAINIDE [Concomitant]
     Active Substance: FLECAINIDE
     Indication: Ocular hypertension

REACTIONS (4)
  - Ocular hypertension [Unknown]
  - Vision blurred [Unknown]
  - Visual impairment [Unknown]
  - Product use in unapproved indication [Unknown]
